FAERS Safety Report 12284462 (Version 2)
Quarter: 2016Q2

REPORT INFORMATION
  Report Type: Spontaneous
  Country: US (occurrence: US)
  Receive Date: 20160420
  Receipt Date: 20160426
  Transmission Date: 20160815
  Serious: Yes (Other)
  Sender: FDA-Public Use
  Company Number: US-HORIZON-RAV-0081-2016

PATIENT
  Age: 14 Year
  Sex: Male
  Weight: 38 kg

DRUGS (5)
  1. PRO-PHREE [Concomitant]
  2. L-ARGININE [Concomitant]
     Active Substance: ARGININE
  3. CYCLINEX 2 [Concomitant]
  4. RAVICTI [Suspect]
     Active Substance: GLYCEROL PHENYLBUTYRATE
     Indication: UREA CYCLE ENZYME DEFICIENCY
     Dosage: 3.5 ML, TID
     Dates: start: 20151028
  5. SODIUM BENZOATE [Concomitant]
     Active Substance: SODIUM BENZOATE

REACTIONS (2)
  - Drug administration error [Unknown]
  - Underweight [Unknown]
